FAERS Safety Report 5938708-9 (Version None)
Quarter: 2008Q4

REPORT INFORMATION
  Report Type: 
  Country: None (occurrence: None)
  Receive Date: 20081103
  Receipt Date: 20081027
  Transmission Date: 20090506
  Serious: Yes (Other)
  Sender: FDA-Public Use
  Company Number: US-ASTRAZENECA-2008UW24085

PATIENT
  Age: 52 Year
  Sex: Female
  Weight: 95.3 kg

DRUGS (8)
  1. ACCOLATE [Suspect]
     Indication: ASTHMA
     Route: 048
  2. GEODON [Concomitant]
  3. PAXIL [Concomitant]
  4. CELEXA [Concomitant]
  5. CELEBREX [Concomitant]
  6. NEXIUM [Concomitant]
  7. SYMBICORT [Concomitant]
  8. XANAX [Concomitant]

REACTIONS (5)
  - CONTUSION [None]
  - HEADACHE [None]
  - LOSS OF CONSCIOUSNESS [None]
  - NAUSEA [None]
  - VOMITING [None]
